FAERS Safety Report 22171446 (Version 1)
Quarter: 2023Q2

REPORT INFORMATION
  Report Type: Spontaneous
  Country: US (occurrence: US)
  Receive Date: 20230404
  Receipt Date: 20230404
  Transmission Date: 20230722
  Serious: Yes (Other)
  Sender: FDA-Public Use
  Company Number: US-002147023-NVSC2023US072955

PATIENT
  Sex: Female

DRUGS (1)
  1. RECLAST [Suspect]
     Active Substance: ZOLEDRONIC ACID
     Indication: Product used for unknown indication
     Dosage: UNK (INFUSION)
     Route: 042
     Dates: start: 20230324

REACTIONS (6)
  - Seizure [Unknown]
  - Aphasia [Recovered/Resolved]
  - Gait inability [Recovered/Resolved]
  - Joint stiffness [Unknown]
  - Tremor [Unknown]
  - Arthralgia [Unknown]
